FAERS Safety Report 24844733 (Version 2)
Quarter: 2025Q1

REPORT INFORMATION
  Report Type: Spontaneous
  Country: US (occurrence: US)
  Receive Date: 20250115
  Receipt Date: 20250122
  Transmission Date: 20250409
  Serious: Yes (Hospitalization, Other)
  Sender: BRISTOL-MYERS SQUIBB COMPANY
  Company Number: US-BRISTOL-MYERS SQUIBB COMPANY-2025-005619

PATIENT
  Age: 83 Year
  Sex: Female
  Weight: 97.07 kg

DRUGS (17)
  1. ELIQUIS [Suspect]
     Active Substance: APIXABAN
     Indication: Cardiac failure congestive
  2. ELIQUIS [Suspect]
     Active Substance: APIXABAN
     Indication: Atrial fibrillation
  3. TIKOSYN [Suspect]
     Active Substance: DOFETILIDE
     Indication: Atrial fibrillation
     Route: 048
     Dates: start: 20241102
  4. TIKOSYN [Suspect]
     Active Substance: DOFETILIDE
     Route: 048
     Dates: start: 20241031
  5. OMEPRAZOLE [Concomitant]
     Active Substance: OMEPRAZOLE
     Indication: Gastrooesophageal reflux disease
  6. METOPROLOL SUCCINATE [Concomitant]
     Active Substance: METOPROLOL SUCCINATE
     Dosage: ER
  7. AMLODIPINE BESYLATE [Concomitant]
     Active Substance: AMLODIPINE BESYLATE
  8. SIMVASTATIN [Concomitant]
     Active Substance: SIMVASTATIN
  9. THERA D [Concomitant]
  10. CALCIUM CARBONATE\CHOLECALCIFEROL [Concomitant]
     Active Substance: CALCIUM CARBONATE\CHOLECALCIFEROL
     Dosage: 1200 MG CALCIUM PLUS 25 MCG
  11. ALBUTEROL SULFATE [Concomitant]
     Active Substance: ALBUTEROL SULFATE
     Dosage: EVERY 4 HOURS AS NEEDED
  12. HYDROXYCHLOROQUINE SULFATE [Concomitant]
     Active Substance: HYDROXYCHLOROQUINE SULFATE
  13. DULOXETINE [Concomitant]
     Active Substance: DULOXETINE
  14. GABAPENTIN [Concomitant]
     Active Substance: GABAPENTIN
  15. POTASSIUM CHLORIDE EXTENDED RELEASE [Concomitant]
     Active Substance: POTASSIUM CHLORIDE
  16. FUROSEMIDE [Concomitant]
     Active Substance: FUROSEMIDE
     Dosage: AS NEEDED
  17. LASIX [Concomitant]
     Active Substance: FUROSEMIDE

REACTIONS (2)
  - Atrial fibrillation [Recovering/Resolving]
  - Dry mouth [Recovering/Resolving]
